FAERS Safety Report 8851394 (Version 3)
Quarter: 2013Q2

REPORT INFORMATION
  Report Type: Report from Study
  Country: CA (occurrence: CA)
  Receive Date: 20121022
  Receipt Date: 20130624
  Transmission Date: 20140414
  Serious: Yes (Hospitalization)
  Sender: FDA-Public Use
  Company Number: CA-ROCHE-1147245

PATIENT
  Age: 71 Year
  Sex: Female
  Weight: 81.9 kg

DRUGS (11)
  1. ACTEMRA [Suspect]
     Indication: RHEUMATOID ARTHRITIS
     Route: 042
     Dates: start: 20110404
  2. ACTEMRA [Suspect]
     Route: 065
     Dates: start: 20120330
  3. ACTEMRA [Suspect]
     Route: 065
     Dates: start: 20120918
  4. ACTEMRA [Suspect]
     Route: 065
     Dates: start: 20130417
  5. METHOTREXATE [Concomitant]
     Dosage: STRENGTH: 25 MG/ML
     Route: 058
  6. EFFEXOR [Concomitant]
  7. ACETYLSALICYLIC ACID [Concomitant]
  8. NEXIUM [Concomitant]
     Route: 065
  9. LIPITOR [Concomitant]
  10. TENORMIN [Concomitant]
  11. SYNTHROID [Concomitant]

REACTIONS (4)
  - Skin ulcer [Not Recovered/Not Resolved]
  - Phlebitis [Not Recovered/Not Resolved]
  - Weight increased [Not Recovered/Not Resolved]
  - Bronchitis [Unknown]
